FAERS Safety Report 10394186 (Version 1)
Quarter: 2014Q3

REPORT INFORMATION
  Report Type: Report from Study
  Country: JP (occurrence: JP)
  Receive Date: 20140819
  Receipt Date: 20140819
  Transmission Date: 20150326
  Serious: Yes (Death)
  Sender: FDA-Public Use
  Company Number: JP-SA-2014SA111006

PATIENT

DRUGS (5)
  1. BLOOD TRANSFUSION, AUXILIARY PRODUCTS [Concomitant]
     Active Substance: WHOLE BLOOD
  2. METHOTREXATE [Suspect]
     Active Substance: METHOTREXATE
     Indication: IMMUNOSUPPRESSION
     Dosage: ON DAYS 1, 3 AND 6
     Route: 042
  3. TACROLIMUS. [Suspect]
     Active Substance: TACROLIMUS
     Indication: IMMUNOSUPPRESSION
     Route: 042
  4. MYCOPHENOLATE MOFETIL. [Suspect]
     Active Substance: MYCOPHENOLATE MOFETIL
     Indication: IMMUNOSUPPRESSION
     Dosage: 30MG/KG DAILY IN THREE DIVIDED DOSE BETWEEN DAY 7 AND 27
     Route: 048
  5. FLUDARABINE PHOSPHATE. [Suspect]
     Active Substance: FLUDARABINE PHOSPHATE
     Indication: BONE MARROW CONDITIONING REGIMEN
     Route: 065

REACTIONS (2)
  - Off label use [Unknown]
  - Interstitial lung disease [Fatal]
